FAERS Safety Report 4778650-2 (Version None)
Quarter: 2005Q3

REPORT INFORMATION
  Report Type: 
  Country: None (occurrence: None)
  Receive Date: 20050926
  Receipt Date: 20050914
  Transmission Date: 20060218
  Serious: Yes (Other)
  Sender: FDA-Public Use
  Company Number: FR-GLAXOSMITHKLINE-B0393947A

PATIENT
  Age: 73 Year
  Sex: Male

DRUGS (7)
  1. AVANDAMET [Suspect]
     Route: 048
     Dates: start: 20050101
  2. ISOPTIN [Concomitant]
     Dosage: 240MG PER DAY
     Route: 048
  3. KARDEGIC [Concomitant]
     Route: 048
  4. NITROGLYCERIN [Concomitant]
     Dosage: 10MG PER DAY
     Route: 065
  5. TRIATEC [Concomitant]
     Dosage: 10MG PER DAY
     Route: 048
  6. OGAST [Concomitant]
     Dosage: 30MG PER DAY
     Route: 048
  7. CRESTOR [Concomitant]
     Dosage: 10MG PER DAY
     Route: 048

REACTIONS (2)
  - BLOOD IRON DECREASED [None]
  - MICROCYTIC ANAEMIA [None]
